FAERS Safety Report 24392450 (Version 1)
Quarter: 2024Q4

REPORT INFORMATION
  Report Type: Spontaneous
  Country: US (occurrence: US)
  Receive Date: 20241003
  Receipt Date: 20241003
  Transmission Date: 20250115
  Serious: Yes (Other)
  Sender: GRIFOLS
  Company Number: US-IGSA-BIG0030512

PATIENT
  Age: 69 Year
  Sex: Male

DRUGS (2)
  1. VISTASEAL [Suspect]
     Active Substance: FIBRINOGEN HUMAN\HUMAN THROMBIN
     Indication: Pterygium operation
     Dosage: UNK UNKNOWN, UNKNOWN
     Route: 065
     Dates: start: 2024, end: 2024
  2. VISTASEAL [Suspect]
     Active Substance: FIBRINOGEN HUMAN\HUMAN THROMBIN
     Indication: Intentional product use issue

REACTIONS (2)
  - Inflammation [Not Recovered/Not Resolved]
  - Conjunctival granuloma [Not Recovered/Not Resolved]

NARRATIVE: CASE EVENT DATE: 20240101
